FAERS Safety Report 16128674 (Version 1)
Quarter: 2019Q1

REPORT INFORMATION
  Report Type: Spontaneous
  Country: US (occurrence: US)
  Receive Date: 20190328
  Receipt Date: 20190328
  Transmission Date: 20190418
  Serious: No
  Sender: FDA-Public Use
  Company Number: US-MISSION PHARMACAL COMPANY-2064826

PATIENT
  Age: 67 Year
  Sex: Female

DRUGS (21)
  1. ALLOPURINOL. [Concomitant]
     Active Substance: ALLOPURINOL
  2. ACYCLOVIR. [Concomitant]
     Active Substance: ACYCLOVIR
  3. ALPHA LIPOIC ACID [Concomitant]
     Active Substance: .ALPHA.-LIPOIC ACID
  4. PROGESTERONE. [Concomitant]
     Active Substance: PROGESTERONE
  5. OMEPRAZOLE. [Concomitant]
     Active Substance: OMEPRAZOLE
  6. BIOTIN [Concomitant]
     Active Substance: BIOTIN
  7. LANTUS SOLOSTAR [Concomitant]
     Active Substance: INSULIN GLARGINE
  8. OMEGA 3 ACID ETHYL ESTERS [Concomitant]
     Active Substance: OMEGA-3-ACID ETHYL ESTERS
  9. UROCIT-K [Suspect]
     Active Substance: POTASSIUM CITRATE
     Indication: HYPOCITRATURIA
     Route: 048
     Dates: start: 20190303, end: 20190324
  10. ETHACRYNIC ACID. [Concomitant]
     Active Substance: ETHACRYNIC ACID
  11. PREDNISOLONE. [Concomitant]
     Active Substance: PREDNISOLONE
  12. COENZYME Q10 [Concomitant]
     Active Substance: UBIDECARENONE
  13. ESTRADIOL VAGINAL [Concomitant]
     Active Substance: ESTRADIOL
  14. FOLIC ACID. [Concomitant]
     Active Substance: FOLIC ACID
  15. OFLOXACIN. [Concomitant]
     Active Substance: OFLOXACIN
  16. KETOROLAC [Concomitant]
     Active Substance: KETOROLAC\KETOROLAC TROMETHAMINE
  17. PROGRAF [Concomitant]
     Active Substance: TACROLIMUS\TACROLIMUS ANHYDROUS
  18. RESVERATROL [Concomitant]
     Active Substance: DIETARY SUPPLEMENT\RESVERATROL
  19. HUMALOG [Concomitant]
     Active Substance: INSULIN LISPRO
  20. PREDNISONE. [Concomitant]
     Active Substance: PREDNISONE
  21. RESTASIS [Concomitant]
     Active Substance: CYCLOSPORINE

REACTIONS (4)
  - Nausea [Recovered/Resolved]
  - Motion sickness [Recovered/Resolved]
  - Vertigo [Recovered/Resolved]
  - Dizziness [Recovered/Resolved]
